FAERS Safety Report 13281851 (Version 1)
Quarter: 2017Q1

REPORT INFORMATION
  Report Type: Spontaneous
  Country: JP (occurrence: JP)
  Receive Date: 20170301
  Receipt Date: 20170301
  Transmission Date: 20170428
  Serious: Yes (Hospitalization, Other)
  Sender: FDA-Public Use
  Company Number: JP-ASTELLAS-2008JP005078

PATIENT
  Age: 2 Year
  Sex: Female
  Weight: 11 kg

DRUGS (18)
  1. LONGES [Concomitant]
     Active Substance: LISINOPRIL
     Indication: CHRONIC KIDNEY DISEASE
  2. SODIUM CHLORIDE. [Concomitant]
     Active Substance: SODIUM CHLORIDE
     Indication: CHRONIC KIDNEY DISEASE
     Dosage: UNK UNK, THRICE DAILY
     Route: 048
  3. BAKTAR [Concomitant]
     Active Substance: SULFAMETHOXAZOLE\TRIMETHOPRIM
     Indication: PRODUCT USED FOR UNKNOWN INDICATION
     Dosage: 0.5 G, ONCE DAILY
     Route: 048
     Dates: start: 200710
  4. DENOSINE                           /00784201/ [Concomitant]
     Active Substance: GANCICLOVIR
     Indication: EPSTEIN-BARR VIRAEMIA
  5. PROGRAF [Suspect]
     Active Substance: TACROLIMUS\TACROLIMUS ANHYDROUS
     Dosage: 3.6 MG, ONCE DAILY
     Route: 048
     Dates: start: 20080421, end: 20080508
  6. PROGRAF [Suspect]
     Active Substance: TACROLIMUS\TACROLIMUS ANHYDROUS
     Route: 048
     Dates: start: 20080509, end: 20080527
  7. PROGRAF [Suspect]
     Active Substance: TACROLIMUS\TACROLIMUS ANHYDROUS
     Route: 048
     Dates: start: 20080528, end: 2011
  8. MEDROL [Concomitant]
     Active Substance: METHYLPREDNISOLONE
     Indication: RENAL TRANSPLANT
     Route: 048
     Dates: start: 20070904
  9. LONGES [Concomitant]
     Active Substance: LISINOPRIL
     Indication: CONGENITAL NEPHROTIC SYNDROME
     Dosage: 0.1 MG, ONCE DAILY
     Route: 048
  10. PROGRAF [Suspect]
     Active Substance: TACROLIMUS\TACROLIMUS ANHYDROUS
     Dosage: 1.8-1.0 MG, ONCE DAILY
     Route: 048
     Dates: start: 201203
  11. DENOSINE                           /00784201/ [Concomitant]
     Active Substance: GANCICLOVIR
     Indication: CYTOMEGALOVIRUS HEPATITIS
     Route: 042
     Dates: start: 20080404, end: 20080424
  12. CELLCEPT [Concomitant]
     Active Substance: MYCOPHENOLATE MOFETIL\MYCOPHENOLATE MOFETIL HYDROCHLORIDE
     Indication: RENAL TRANSPLANT
     Dosage: DAILY DOSAGE 200 MG, THRICE DAILY
     Route: 048
     Dates: start: 20070903, end: 20080220
  13. SIMULECT [Concomitant]
     Active Substance: BASILIXIMAB
     Indication: RENAL TRANSPLANT
     Dosage: UNK UNK, UNKNOWN FREQ.
     Route: 065
  14. DENOSINE                           /00784201/ [Concomitant]
     Active Substance: GANCICLOVIR
     Indication: BK VIRUS INFECTION
  15. PROGRAF [Suspect]
     Active Substance: TACROLIMUS\TACROLIMUS ANHYDROUS
     Dosage: 4.0-2.0 MG, ONCE DAILY
     Dates: end: 201202
  16. PROGRAF [Suspect]
     Active Substance: TACROLIMUS\TACROLIMUS ANHYDROUS
     Indication: RENAL TRANSPLANT
     Route: 048
     Dates: start: 20070904, end: 20080420
  17. CELLCEPT [Concomitant]
     Active Substance: MYCOPHENOLATE MOFETIL\MYCOPHENOLATE MOFETIL HYDROCHLORIDE
     Dosage: UNK UNK, THRICE DAILY
     Route: 048
     Dates: end: 20080326
  18. INCREMIN [Concomitant]
     Active Substance: FERRIC PYROPHOSPHATE
     Indication: CHRONIC KIDNEY DISEASE
     Route: 048

REACTIONS (7)
  - Epstein-Barr virus infection [Unknown]
  - Smooth muscle cell neoplasm [Unknown]
  - Cytomegalovirus hepatitis [Recovered/Resolved]
  - Intentional product misuse [Unknown]
  - Epstein-Barr viraemia [Unknown]
  - BK virus infection [Recovered/Resolved]
  - Renal tubular disorder [Not Recovered/Not Resolved]

NARRATIVE: CASE EVENT DATE: 20070904
